FAERS Safety Report 9801695 (Version 3)
Quarter: 2014Q1

REPORT INFORMATION
  Report Type: Report from Study
  Country: DK (occurrence: DK)
  Receive Date: 20140107
  Receipt Date: 20140313
  Transmission Date: 20141002
  Serious: Yes (Death, Life-Threatening, Hospitalization, Other)
  Sender: FDA-Public Use
  Company Number: DK-GLAXOSMITHKLINE-B0957548A

PATIENT
  Age: 72 Year
  Sex: Male

DRUGS (9)
  1. OFATUMUMAB [Suspect]
     Indication: CHRONIC LYMPHOCYTIC LEUKAEMIA
     Dosage: 300MG SINGLE DOSE
     Route: 042
     Dates: start: 20130919
  2. INVESTIGATIONAL DRUG [Suspect]
     Indication: CHRONIC LYMPHOCYTIC LEUKAEMIA
     Dosage: 100MG TWICE PER DAY
     Route: 048
     Dates: start: 20131205, end: 201312
  3. METOPROLOL [Concomitant]
     Dates: start: 20120925, end: 20131207
  4. AMLODIPIN [Concomitant]
     Dates: start: 20120923, end: 20131207
  5. DIGOXIN [Concomitant]
     Dates: start: 20120925, end: 20131207
  6. SIMVASTATIN [Concomitant]
     Dates: start: 20130926, end: 20131207
  7. METFORMIN [Concomitant]
     Dates: start: 20120926, end: 20131207
  8. TINZAPARIN [Concomitant]
     Dates: start: 20130515
  9. ALLOPURINOL [Concomitant]
     Dates: start: 20130923, end: 20131207

REACTIONS (1)
  - Acute myocardial infarction [Fatal]
